FAERS Safety Report 16020763 (Version 1)
Quarter: 2019Q1

REPORT INFORMATION
  Report Type: Report from Study
  Country: DE (occurrence: DE)
  Receive Date: 20190301
  Receipt Date: 20190301
  Transmission Date: 20190418
  Serious: Yes (Hospitalization, Disabling, Other)
  Sender: FDA-Public Use
  Company Number: DE-ROCHE-257312

PATIENT
  Age: 75 Year
  Sex: Female

DRUGS (14)
  1. DIAZEPAM. [Suspect]
     Active Substance: DIAZEPAM
     Indication: PRODUCT USED FOR UNKNOWN INDICATION
     Route: 048
     Dates: start: 20001204, end: 20001205
  2. BIFITERAL [Concomitant]
     Active Substance: LACTULOSE
     Route: 048
  3. MONO-EMBOLEX [Concomitant]
     Active Substance: CERTOPARIN SODIUM
     Dosage: DAILY DOSE=1 AMPULE
     Route: 058
     Dates: start: 20001205, end: 20001219
  4. CIPRAMIL (CITALOPRAM HYDROBROMIDE) [Suspect]
     Active Substance: CITALOPRAM HYDROBROMIDE
     Indication: PRODUCT USED FOR UNKNOWN INDICATION
     Route: 048
  5. HALDOL [Suspect]
     Active Substance: HALOPERIDOL
     Indication: PRODUCT USED FOR UNKNOWN INDICATION
     Route: 048
     Dates: start: 20001130, end: 20001206
  6. MUSARIL [Suspect]
     Active Substance: TETRAZEPAM
     Indication: PRODUCT USED FOR UNKNOWN INDICATION
     Route: 048
     Dates: start: 20001206, end: 20001219
  7. L-THYROXIN [Concomitant]
     Active Substance: LEVOTHYROXINE SODIUM
     Route: 048
  8. XIMOVAN [Concomitant]
     Active Substance: ZOPICLONE
     Dosage: 7.5 MG FROM 02 DEC 2000.
     Route: 048
  9. TRAMAL [Suspect]
     Active Substance: TRAMADOL
     Indication: PRODUCT USED FOR UNKNOWN INDICATION
     Route: 048
     Dates: start: 20001205, end: 20001219
  10. PARACETAMOL [Concomitant]
     Active Substance: ACETAMINOPHEN
     Route: 048
     Dates: start: 20001205, end: 20001219
  11. DIAZEPAM. [Suspect]
     Active Substance: DIAZEPAM
     Route: 048
     Dates: start: 20001206, end: 20001206
  12. VIGANTOLETTEN [Concomitant]
     Active Substance: CHOLECALCIFEROL
     Dosage: DAILY DOSE=1 AMPULE
     Route: 058
  13. DIAZEPAM. [Suspect]
     Active Substance: DIAZEPAM
     Route: 048
     Dates: start: 20001130, end: 20001203
  14. HALDOL [Suspect]
     Active Substance: HALOPERIDOL
     Route: 048

REACTIONS (15)
  - Dizziness postural [Recovered/Resolved]
  - Fall [Unknown]
  - Embolism [Recovering/Resolving]
  - Urinary retention [Recovering/Resolving]
  - Escherichia test [None]
  - Bladder catheterisation [Unknown]
  - Cystitis [Recovered/Resolved]
  - Somnolence [Recovered/Resolved]
  - Vomiting [Unknown]
  - Organic brain syndrome [None]
  - Spinal fracture [Unknown]
  - Urosepsis [Unknown]
  - Blood pressure decreased [Recovered/Resolved]
  - Urinary tract infection [Recovered/Resolved]
  - Back pain [Recovered/Resolved with Sequelae]

NARRATIVE: CASE EVENT DATE: 20001205
